FAERS Safety Report 8009879-8 (Version None)
Quarter: 2011Q4

REPORT INFORMATION
  Report Type: 
  Country: None (occurrence: None)
  Receive Date: 20111228
  Receipt Date: 20111219
  Transmission Date: 20120403
  Serious: Yes (Hospitalization)
  Sender: FDA-Public Use
  Company Number: US-BAYER-2011-049564

PATIENT
  Age: 28 Year
  Sex: Female
  Weight: 59 kg

DRUGS (3)
  1. YASMIN [Suspect]
     Dosage: UNK
     Dates: start: 20080901, end: 20090701
  2. MULTI-VITAMINS [Concomitant]
     Dosage: UNK
     Route: 048
     Dates: start: 19990101
  3. YAZ [Suspect]
     Dosage: UNK
     Dates: start: 20060901, end: 20080901

REACTIONS (12)
  - CONTUSION [None]
  - PULMONARY THROMBOSIS [None]
  - DYSPNOEA [None]
  - FEAR [None]
  - DISCOMFORT [None]
  - ANXIETY [None]
  - GENERAL PHYSICAL HEALTH DETERIORATION [None]
  - PAIN [None]
  - CHEST PAIN [None]
  - PULMONARY EMBOLISM [None]
  - EMOTIONAL DISTRESS [None]
  - SCAR [None]
